FAERS Safety Report 14616154 (Version 1)
Quarter: 2018Q1

REPORT INFORMATION
  Report Type: Spontaneous
  Country: FR (occurrence: FR)
  Receive Date: 20180309
  Receipt Date: 20180309
  Transmission Date: 20180509
  Serious: Yes (Disabling, Other)
  Sender: FDA-Public Use
  Company Number: FR-MERCK KGAA-2043391

PATIENT
  Age: 40 Year
  Sex: Female

DRUGS (4)
  1. LEVOTHYROX 25 [Suspect]
     Active Substance: LEVOTHYROXINE SODIUM
     Route: 048
     Dates: start: 20170401, end: 20170831
  2. ATENOLOL. [Concomitant]
     Active Substance: ATENOLOL
     Route: 048
  3. NOVOTHYROX [Suspect]
     Active Substance: LEVOTHYROXINE SODIUM
     Indication: HYPOTHYROIDISM
     Route: 048
     Dates: start: 20170401, end: 20170831
  4. ATENOLOL. [Concomitant]
     Active Substance: ATENOLOL
     Route: 048
     Dates: start: 20170615

REACTIONS (20)
  - Diarrhoea [Recovered/Resolved]
  - Dyspnoea [Recovered/Resolved]
  - Menstrual disorder [Recovered/Resolved]
  - Tension headache [Recovered/Resolved]
  - Aphasia [Recovered/Resolved]
  - Onychoclasis [Recovered/Resolved]
  - Vision blurred [Recovered/Resolved]
  - Malaise [Recovered/Resolved]
  - Hyperchlorhydria [Recovered/Resolved]
  - Head discomfort [Recovered/Resolved]
  - Vertigo [Recovered/Resolved]
  - Fatigue [Recovered/Resolved]
  - Confusional state [Recovered/Resolved]
  - Tremor [Recovered/Resolved]
  - Insomnia [Recovered/Resolved]
  - Nausea [Recovered/Resolved]
  - Tachycardia [Recovered/Resolved]
  - Hypertension [Recovered/Resolved]
  - Hyperhidrosis [Recovered/Resolved]
  - Headache [Recovered/Resolved]

NARRATIVE: CASE EVENT DATE: 20170401
